FAERS Safety Report 6087584-5 (Version None)
Quarter: 2009Q1

REPORT INFORMATION
  Report Type: 
  Country: None (occurrence: None)
  Receive Date: 20090223
  Receipt Date: 20090218
  Transmission Date: 20090719
  Serious: No
  Sender: FDA-Public Use
  Company Number: KR-JNJFOC-20090204946

PATIENT
  Age: 52 Year
  Sex: Female

DRUGS (2)
  1. DURAGESIC-100 [Suspect]
     Indication: BACK PAIN
     Route: 062
  2. ANTIDEPRESSANTS [Concomitant]
     Indication: DEPRESSION
     Route: 065

REACTIONS (2)
  - ANXIETY [None]
  - WRONG TECHNIQUE IN DRUG USAGE PROCESS [None]
